FAERS Safety Report 17874146 (Version 4)
Quarter: 2020Q3

REPORT INFORMATION
  Report Type: Spontaneous
  Country: US (occurrence: US)
  Receive Date: 20200609
  Receipt Date: 20200924
  Transmission Date: 20201103
  Serious: Yes (Other)
  Sender: FDA-Public Use
  Company Number: US-TAKEDA-2020TUS025265

PATIENT
  Sex: Female
  Weight: 60.77 kg

DRUGS (1)
  1. NINLARO [Suspect]
     Active Substance: IXAZOMIB CITRATE
     Indication: PLASMA CELL MYELOMA
     Dosage: 3 MILLIGRAM
     Route: 048
     Dates: start: 20200323

REACTIONS (4)
  - Laboratory test abnormal [Unknown]
  - Oedema peripheral [Unknown]
  - Nervousness [Not Recovered/Not Resolved]
  - Flatulence [Unknown]
